FAERS Safety Report 24698513 (Version 1)
Quarter: 2024Q4

REPORT INFORMATION
  Report Type: Spontaneous
  Country: FR (occurrence: FR)
  Receive Date: 20241204
  Receipt Date: 20241204
  Transmission Date: 20250115
  Serious: Yes (Hospitalization)
  Sender: ORGANON
  Company Number: None

PATIENT
  Age: 21 Year
  Sex: Female
  Weight: 45 kg

DRUGS (4)
  1. DESLORATADINE [Suspect]
     Active Substance: DESLORATADINE
     Indication: Poisoning deliberate
     Dosage: 40 MILLIGRAM, QD
     Route: 048
     Dates: start: 20241029, end: 20241029
  2. ACETAMINOPHEN\CAFFEINE [Suspect]
     Active Substance: ACETAMINOPHEN\CAFFEINE
     Indication: Poisoning deliberate
     Dosage: 9 GRAM, QD
     Route: 048
     Dates: start: 20241029, end: 20241029
  3. VOGALENE [Suspect]
     Active Substance: METOPIMAZINE
     Indication: Poisoning deliberate
     Dosage: 225 MILLIGRAM, QD
     Route: 048
     Dates: start: 20241029, end: 20241029
  4. ESCITALOPRAM [Suspect]
     Active Substance: ESCITALOPRAM OXALATE
     Indication: Poisoning deliberate
     Dosage: 140 MILLIGRAM, QD
     Route: 048
     Dates: start: 20241029, end: 20241029

REACTIONS (3)
  - Hypotension [Recovered/Resolved]
  - Tachycardia [Recovered/Resolved]
  - Somnolence [Recovered/Resolved]

NARRATIVE: CASE EVENT DATE: 20241029
